FAERS Safety Report 23017443 (Version 6)
Quarter: 2024Q1

REPORT INFORMATION
  Report Type: Spontaneous
  Country: US (occurrence: None)
  Receive Date: 20231003
  Receipt Date: 20240110
  Transmission Date: 20240409
  Serious: No
  Sender: FDA-Public Use
  Company Number: 2023A219522

PATIENT
  Age: 27978 Day
  Sex: Male

DRUGS (2)
  1. BYDUREON BCISE [Suspect]
     Active Substance: EXENATIDE
     Indication: Diabetes mellitus
     Dates: start: 20230918
  2. BYETTA [Suspect]
     Active Substance: EXENATIDE

REACTIONS (7)
  - Blood glucose increased [Unknown]
  - Injection site haemorrhage [Unknown]
  - Injection site discharge [Unknown]
  - Injection site mass [Unknown]
  - Incorrect dose administered by device [Unknown]
  - Wrong technique in device usage process [Unknown]
  - Device leakage [Unknown]

NARRATIVE: CASE EVENT DATE: 20230918
